FAERS Safety Report 15594249 (Version 2)
Quarter: 2018Q4

REPORT INFORMATION
  Report Type: Spontaneous
  Country: US (occurrence: US)
  Receive Date: 20181107
  Receipt Date: 20181114
  Transmission Date: 20190205
  Serious: No
  Sender: FDA-Public Use
  Company Number: US-TEVA-2018-US-970034

PATIENT
  Sex: Female

DRUGS (2)
  1. ACTAVIS LISINOPRIL [Suspect]
     Active Substance: LISINOPRIL
     Indication: HYPERTENSION
     Route: 065
     Dates: start: 2018
  2. TEVA LISINOPRIL [Suspect]
     Active Substance: LISINOPRIL
     Indication: HYPERTENSION
     Route: 065

REACTIONS (2)
  - Skin exfoliation [Not Recovered/Not Resolved]
  - Skin weeping [Not Recovered/Not Resolved]

NARRATIVE: CASE EVENT DATE: 2018
